FAERS Safety Report 24014766 (Version 1)
Quarter: 2024Q2

REPORT INFORMATION
  Report Type: Spontaneous
  Country: US (occurrence: US)
  Receive Date: 20240626
  Receipt Date: 20240626
  Transmission Date: 20240716
  Serious: Yes (Other)
  Sender: FDA-Public Use
  Company Number: US-INCYTE CORPORATION-2024IN006749

PATIENT

DRUGS (1)
  1. PEMAZYRE [Suspect]
     Active Substance: PEMIGATINIB
     Indication: Chronic myeloid leukaemia
     Dosage: 4.5 MILLIGRAM
     Route: 065

REACTIONS (11)
  - Internal haemorrhage [Unknown]
  - Alopecia [Unknown]
  - Onycholysis [Unknown]
  - Fatigue [Unknown]
  - Dyspnoea [Unknown]
  - Headache [Unknown]
  - Amnesia [Unknown]
  - Pain [Unknown]
  - Visual impairment [Unknown]
  - Constipation [Not Recovered/Not Resolved]
  - Off label use [Unknown]
